FAERS Safety Report 18238874 (Version 2)
Quarter: 2020Q3

REPORT INFORMATION
  Report Type: Spontaneous
  Country: JP (occurrence: JP)
  Receive Date: 20200907
  Receipt Date: 20200915
  Transmission Date: 20201103
  Serious: Yes (Death, Hospitalization, Other)
  Sender: FDA-Public Use
  Company Number: JP-ASTRAZENECA-2020SF11681

PATIENT
  Age: 47 Year
  Sex: Female

DRUGS (7)
  1. FASLODEX [Suspect]
     Active Substance: FULVESTRANT
     Indication: BREAST CANCER FEMALE
     Dosage: DOSE UNKNOWN, DAILY
     Route: 030
     Dates: start: 201811, end: 201812
  2. PALBOCICLIB [Concomitant]
     Active Substance: PALBOCICLIB
     Indication: BREAST CANCER FEMALE
     Dosage: DOSE UNKNOWN
     Route: 065
     Dates: start: 201901, end: 201902
  3. LYNPARZA [Suspect]
     Active Substance: OLAPARIB
     Indication: BREAST CANCER FEMALE
     Route: 048
     Dates: start: 201904, end: 201905
  4. LYNPARZA [Suspect]
     Active Substance: OLAPARIB
     Indication: BREAST CANCER FEMALE
     Route: 048
     Dates: start: 201902, end: 201904
  5. PALBOCICLIB [Concomitant]
     Active Substance: PALBOCICLIB
     Indication: BREAST CANCER FEMALE
     Dosage: DOSE UNKNOWN
     Route: 065
     Dates: start: 201811, end: 201912
  6. FASLODEX [Suspect]
     Active Substance: FULVESTRANT
     Indication: BREAST CANCER FEMALE
     Dosage: DOSE UNKNOWN, DAILY
     Route: 030
     Dates: start: 201901, end: 201902
  7. LYNPARZA [Suspect]
     Active Substance: OLAPARIB
     Indication: BREAST CANCER FEMALE
     Route: 048
     Dates: start: 201905, end: 202001

REACTIONS (9)
  - Liver disorder [Unknown]
  - White blood cell count decreased [Unknown]
  - Death [Fatal]
  - Metastases to liver [Unknown]
  - Upper gastrointestinal perforation [Unknown]
  - Platelet count decreased [Unknown]
  - Anaemia [Unknown]
  - Malignant neoplasm progression [Unknown]
  - Ascites [Unknown]

NARRATIVE: CASE EVENT DATE: 201902
